FAERS Safety Report 19715556 (Version 6)
Quarter: 2021Q4

REPORT INFORMATION
  Report Type: Spontaneous
  Country: CA (occurrence: CA)
  Receive Date: 20210818
  Receipt Date: 20211104
  Transmission Date: 20220303
  Serious: Yes (Other)
  Sender: FDA-Public Use
  Company Number: CA-CELLTRION INC.-2021CA010984

PATIENT

DRUGS (3)
  1. INFLECTRA [Suspect]
     Active Substance: INFLIXIMAB-DYYB
     Indication: Colitis ulcerative
     Dosage: 5 MG/KG, 0, 2, 6 THEN EVERY 8 WEEKS
     Route: 041
     Dates: start: 20210723
  2. INFLECTRA [Suspect]
     Active Substance: INFLIXIMAB-DYYB
     Dosage: 200 MG, 0, 2, 6 WEEKS THEN EVERY 8 WEEKS
     Route: 042
     Dates: start: 20210806
  3. INFLECTRA [Suspect]
     Active Substance: INFLIXIMAB-DYYB
     Dosage: 5 MG/KG, 0, 2, 6 THEN EVERY 8 WEEKS
     Route: 041
     Dates: start: 20210806

REACTIONS (13)
  - Weight increased [Unknown]
  - Asthenia [Unknown]
  - Condition aggravated [Not Recovered/Not Resolved]
  - Abdominal discomfort [Unknown]
  - Eating disorder [Unknown]
  - Dizziness [Recovering/Resolving]
  - Heart rate increased [Unknown]
  - Poor venous access [Unknown]
  - Anxiety [Unknown]
  - Poor quality sleep [Unknown]
  - Paravenous drug administration [Unknown]
  - Underdose [Unknown]
  - Abdominal discomfort [Unknown]

NARRATIVE: CASE EVENT DATE: 20210101
